FAERS Safety Report 9753709 (Version 1)
Quarter: 2013Q4

REPORT INFORMATION
  Report Type: Spontaneous
  Country: US (occurrence: US)
  Receive Date: 20131213
  Receipt Date: 20131213
  Transmission Date: 20140711
  Serious: No
  Sender: FDA-Public Use
  Company Number: US-GILEAD-2010-0026587

PATIENT
  Age: 49 Year
  Sex: Female

DRUGS (7)
  1. LETAIRIS [Suspect]
     Indication: PULMONARY ARTERIAL HYPERTENSION
     Route: 048
     Dates: start: 20090907
  2. PREVACID [Concomitant]
  3. HYDROXYZINE [Concomitant]
  4. GABAPENTIN [Concomitant]
  5. AVONEX [Concomitant]
  6. FUROSEMIDE [Concomitant]
  7. LISINOPRIL [Concomitant]

REACTIONS (1)
  - Increased upper airway secretion [Not Recovered/Not Resolved]
